FAERS Safety Report 7007105-X (Version None)
Quarter: 2010Q3

REPORT INFORMATION
  Report Type: 
  Country: None (occurrence: None)
  Receive Date: 20100922
  Receipt Date: 20100920
  Transmission Date: 20110219
  Serious: Yes (Death)
  Sender: FDA-Public Use
  Company Number: PHHY2010US62448

PATIENT
  Sex: Male
  Weight: 76 kg

DRUGS (1)
  1. EXJADE [Suspect]
     Indication: NEOPLASM
     Dosage: UNK
     Dates: start: 20100823

REACTIONS (1)
  - DEATH [None]
